FAERS Safety Report 14756609 (Version 3)
Quarter: 2018Q2

REPORT INFORMATION
  Report Type: Spontaneous
  Country: US (occurrence: US)
  Receive Date: 20180413
  Receipt Date: 20180522
  Transmission Date: 20180711
  Serious: No
  Sender: FDA-Public Use
  Company Number: US-GLAXOSMITHKLINE-US2018057570

PATIENT
  Age: 52 Year
  Sex: Female

DRUGS (2)
  1. NICORETTE CINNAMON SURGE [Suspect]
     Active Substance: NICOTINE
     Dosage: UNK
  2. NICORETTE CINNAMON SURGE [Suspect]
     Active Substance: NICOTINE
     Indication: SMOKING CESSATION THERAPY
     Dosage: 2 MG, UNK
     Dates: start: 201801

REACTIONS (4)
  - Product quality issue [Unknown]
  - Nicotine dependence [Unknown]
  - Dyspepsia [Unknown]
  - Nausea [Unknown]
